FAERS Safety Report 21385366 (Version 2)
Quarter: 2022Q4

REPORT INFORMATION
  Report Type: Spontaneous
  Country: US (occurrence: US)
  Receive Date: 20220928
  Receipt Date: 20221228
  Transmission Date: 20230113
  Serious: Yes (Other)
  Sender: FDA-Public Use
  Company Number: US-BRISTOL-MYERS SQUIBB COMPANY-2022-110214

PATIENT
  Age: 78 Year
  Sex: Female
  Weight: 72.57 kg

DRUGS (6)
  1. OPDIVO [Suspect]
     Active Substance: NIVOLUMAB
     Indication: Laryngeal cancer
     Dosage: REFER TO NARRATIVEINCLUDECLINICAL
     Route: 042
  2. OPDIVO [Suspect]
     Active Substance: NIVOLUMAB
     Route: 042
  3. GLYBURIDE [Concomitant]
     Active Substance: GLYBURIDE
     Indication: Product used for unknown indication
  4. METFORMIN [Concomitant]
     Active Substance: METFORMIN HYDROCHLORIDE
     Indication: Product used for unknown indication
  5. SYNTHROID [Concomitant]
     Active Substance: LEVOTHYROXINE SODIUM
     Indication: Thyroid disorder
  6. VITAMIN D [Concomitant]
     Active Substance: VITAMIN D NOS
     Indication: Product used for unknown indication

REACTIONS (14)
  - Pain in extremity [Unknown]
  - Muscular weakness [Unknown]
  - Pain [Unknown]
  - Asthenia [Unknown]
  - Arthritis [Unknown]
  - Joint instability [Unknown]
  - Blood iron decreased [Recovered/Resolved]
  - Alopecia [Recovered/Resolved]
  - Macular degeneration [Unknown]
  - Hypotonic urinary bladder [Unknown]
  - Fall [Unknown]
  - Off label use [Unknown]
  - Gout [Unknown]
  - Muscle atrophy [Unknown]

NARRATIVE: CASE EVENT DATE: 20211001
